FAERS Safety Report 12158852 (Version 1)
Quarter: 2016Q1

REPORT INFORMATION
  Report Type: Spontaneous
  Country: US (occurrence: US)
  Receive Date: 20160308
  Receipt Date: 20160308
  Transmission Date: 20160526
  Serious: No
  Sender: FDA-Public Use
  Company Number: US-JNJFOC-20160210912

PATIENT
  Age: 82 Year
  Sex: Male
  Weight: 64.41 kg

DRUGS (1)
  1. TYLENOL EXTRA STRENGTH [Suspect]
     Active Substance: ACETAMINOPHEN
     Indication: CANCER PAIN
     Dosage: 1-2 TIMES A DAY
     Route: 048
     Dates: start: 20160127

REACTIONS (3)
  - Therapeutic response unexpected [Unknown]
  - Product use issue [Unknown]
  - Off label use [Unknown]
